FAERS Safety Report 24075830 (Version 1)
Quarter: 2024Q3

REPORT INFORMATION
  Report Type: Spontaneous
  Country: BE (occurrence: BE)
  Receive Date: 20240710
  Receipt Date: 20240710
  Transmission Date: 20241017
  Serious: Yes (Other)
  Sender: AMGEN
  Company Number: BE-AMGEN-BELSP2024132870

PATIENT

DRUGS (9)
  1. XGEVA [Suspect]
     Active Substance: DENOSUMAB
     Indication: Breast cancer
     Dosage: UNK
     Route: 065
  2. XGEVA [Suspect]
     Active Substance: DENOSUMAB
     Indication: Lung neoplasm malignant
  3. XGEVA [Suspect]
     Active Substance: DENOSUMAB
     Indication: Prostate cancer
  4. XGEVA [Suspect]
     Active Substance: DENOSUMAB
     Indication: Renal cancer
  5. XGEVA [Suspect]
     Active Substance: DENOSUMAB
     Indication: Gastrointestinal carcinoma
  6. XGEVA [Suspect]
     Active Substance: DENOSUMAB
     Indication: Thyroid neoplasm
  7. XGEVA [Suspect]
     Active Substance: DENOSUMAB
     Indication: Malignant melanoma
  8. XGEVA [Suspect]
     Active Substance: DENOSUMAB
     Indication: Bladder cancer
  9. XGEVA [Suspect]
     Active Substance: DENOSUMAB
     Indication: Cholangiocarcinoma

REACTIONS (1)
  - Pathological fracture [Unknown]
